FAERS Safety Report 20850666 (Version 2)
Quarter: 2024Q1

REPORT INFORMATION
  Report Type: Report from Study
  Country: GB (occurrence: GB)
  Receive Date: 20220519
  Receipt Date: 20240220
  Transmission Date: 20240410
  Serious: Yes (Other)
  Sender: FDA-Public Use
  Company Number: GB-002147023-NVSC2022GB082716

PATIENT
  Age: 51 Year
  Sex: Female

DRUGS (4)
  1. VENLAFAXINE [Suspect]
     Active Substance: VENLAFAXINE HYDROCHLORIDE
     Indication: Product used for unknown indication
     Dosage: UNK
     Route: 065
  2. SIPONIMOD [Suspect]
     Active Substance: SIPONIMOD
     Indication: Secondary progressive multiple sclerosis
     Dosage: 2 MILLIGRAM, QD
     Route: 048
  3. SIPONIMOD [Suspect]
     Active Substance: SIPONIMOD
     Dosage: 1.25 MILLIGRAM, QD
     Route: 048
     Dates: start: 20220404, end: 20220505
  4. SIPONIMOD [Suspect]
     Active Substance: SIPONIMOD
     Dosage: 2 MILLIGRAM, QD
     Route: 048
     Dates: start: 20220817, end: 20240115

REACTIONS (6)
  - Electrocardiogram QT prolonged [Unknown]
  - Hypertension [Not Recovered/Not Resolved]
  - Fatigue [Not Recovered/Not Resolved]
  - Mobility decreased [Not Recovered/Not Resolved]
  - Limb discomfort [Not Recovered/Not Resolved]
  - Headache [Recovering/Resolving]

NARRATIVE: CASE EVENT DATE: 20220408
